FAERS Safety Report 24767161 (Version 1)
Quarter: 2024Q4

REPORT INFORMATION
  Report Type: Spontaneous
  Country: IT (occurrence: IT)
  Receive Date: 20241223
  Receipt Date: 20241223
  Transmission Date: 20250115
  Serious: Yes (Hospitalization, Other)
  Sender: MYLAN
  Company Number: IT-ADIENNEP-2019AD000173

PATIENT
  Age: 42 Year
  Sex: Female

DRUGS (7)
  1. BUSULFAN [Suspect]
     Active Substance: BUSULFAN
     Indication: Stem cell transplant
     Dosage: 3.2 MILLIGRAM/KILOGRAM, QD (ON DAYS-4-3-2 )
     Route: 042
     Dates: start: 20171110, end: 20171112
  2. FLUDARABINE [Suspect]
     Active Substance: FLUDARABINE PHOSPHATE
     Indication: Stem cell transplant
     Dosage: 50 MILLIGRAM/SQ. METER, QD (ON DAYS 4, 3,2)
     Route: 065
     Dates: start: 20171110, end: 20171112
  3. MYCOPHENOLATE MOFETIL [Suspect]
     Active Substance: MYCOPHENOLATE MOFETIL
     Indication: Prophylaxis against graft versus host disease
     Dosage: 2 GRAM, QD (1/DAY)
     Route: 065
     Dates: start: 20171115
  4. THIOTEPA [Suspect]
     Active Substance: THIOTEPA
     Indication: Stem cell transplant
     Dosage: 5 MILLIGRAM/KILOGRAM, QD (ON DAYS 6 AND 5)
     Route: 065
     Dates: start: 20171108, end: 20171109
  5. CYCLOPHOSPHAMIDE [Suspect]
     Active Substance: CYCLOPHOSPHAMIDE
     Indication: Prophylaxis against graft versus host disease
     Dosage: 30 MILLIGRAM/KILOGRAM, Q2D (1 DOSAGE ON DAY 3 AND 5)
     Route: 065
     Dates: start: 20171117, end: 20171119
  6. CYCLOSPORINE [Suspect]
     Active Substance: CYCLOSPORINE
     Indication: Prophylaxis against graft versus host disease
     Dosage: 3 MILLIGRAM/KILOGRAM
     Route: 042
     Dates: start: 20171114
  7. CYCLOSPORINE [Suspect]
     Active Substance: CYCLOSPORINE
     Indication: Prophylaxis against graft versus host disease
     Dosage: UNK
     Route: 048
     Dates: start: 20171204

REACTIONS (3)
  - Graft versus host disease in skin [Unknown]
  - Influenza [Unknown]
  - Pyrexia [Unknown]

NARRATIVE: CASE EVENT DATE: 20171204
